FAERS Safety Report 12283453 (Version 1)
Quarter: 2016Q2

REPORT INFORMATION
  Report Type: Spontaneous
  Country: FR (occurrence: FR)
  Receive Date: 20160419
  Receipt Date: 20160419
  Transmission Date: 20160815
  Serious: Yes (Hospitalization, Other)
  Sender: FDA-Public Use
  Company Number: FR-ELI_LILLY_AND_COMPANY-FR201604001737

PATIENT
  Age: 56 Year
  Sex: Male

DRUGS (12)
  1. ARANESP [Concomitant]
     Active Substance: DARBEPOETIN ALFA
     Dosage: 135 UG, WEEKLY (1/W)
     Route: 065
  2. OXYCONTIN [Concomitant]
     Active Substance: OXYCODONE HYDROCHLORIDE
     Dosage: 20 MG, BID
     Route: 065
     Dates: start: 2015
  3. LASILIX                            /00032601/ [Concomitant]
     Active Substance: FUROSEMIDE
     Indication: OEDEMA PERIPHERAL
     Dosage: UNK, BID
     Route: 065
     Dates: start: 20151230
  4. APRANAX                            /00256201/ [Concomitant]
     Active Substance: NAPROXEN
     Dosage: UNK, UNKNOWN
     Route: 065
     Dates: start: 20151207, end: 201512
  5. SPECIAFOLDINE [Concomitant]
     Active Substance: FOLIC ACID
     Dosage: 0.4 MG, QD
     Route: 065
     Dates: start: 201504
  6. PANTOPRAZOLE [Concomitant]
     Active Substance: PANTOPRAZOLE SODIUM
     Dosage: 20 MG, UNKNOWN
     Route: 065
     Dates: start: 2015, end: 201512
  7. VITAMIN B12 [Concomitant]
     Active Substance: CYANOCOBALAMIN
     Dosage: UNK, UNKNOWN
     Route: 065
     Dates: end: 20151202
  8. ALIMTA [Suspect]
     Active Substance: PEMETREXED DISODIUM
     Indication: LUNG NEOPLASM MALIGNANT
     Dosage: UNK, UNKNOWN
     Route: 042
     Dates: end: 20160106
  9. INEXIUM                            /01479302/ [Suspect]
     Active Substance: ESOMEPRAZOLE MAGNESIUM
     Indication: OESOPHAGEAL PAIN
     Dosage: UNK, UNKNOWN
     Route: 048
     Dates: start: 201601, end: 201601
  10. ULTIBRO [Concomitant]
     Active Substance: GLYCOPYRRONIUM\INDACATEROL
     Dosage: UNK, UNKNOWN
     Route: 065
     Dates: start: 201504
  11. NEULASTA [Concomitant]
     Active Substance: PEGFILGRASTIM
     Dosage: UNK, UNKNOWN
     Route: 065
  12. SPASFON                            /00934601/ [Concomitant]
     Active Substance: PHLOROGLUCINOL
     Indication: ABDOMINAL PAIN
     Dosage: UNK, UNKNOWN
     Route: 065
     Dates: start: 20160113

REACTIONS (19)
  - Haematuria [Unknown]
  - Decreased appetite [Unknown]
  - Vomiting [Unknown]
  - Epistaxis [Unknown]
  - Hypophagia [Unknown]
  - Asthenia [Unknown]
  - Hepatocellular injury [Recovered/Resolved]
  - Rash maculo-papular [Recovered/Resolved]
  - Thrombocytopenia [Recovering/Resolving]
  - Oedema peripheral [Unknown]
  - Acute kidney injury [Recovering/Resolving]
  - Anuria [Unknown]
  - Groin pain [Unknown]
  - Neutropenia [Recovering/Resolving]
  - Rash pruritic [Recovered/Resolved]
  - Back pain [Unknown]
  - Chest pain [Unknown]
  - Lung consolidation [Unknown]
  - Pleural effusion [Unknown]

NARRATIVE: CASE EVENT DATE: 20160107
